FAERS Safety Report 24808426 (Version 1)
Quarter: 2025Q1

REPORT INFORMATION
  Report Type: Spontaneous
  Country: GR (occurrence: GR)
  Receive Date: 20250106
  Receipt Date: 20250106
  Transmission Date: 20250409
  Serious: No
  Sender: ALKEM
  Company Number: GR-ALKEM LABORATORIES LIMITED-GR-ALKEM-2024-23768

PATIENT
  Age: 17 Year
  Sex: Female

DRUGS (1)
  1. TACROLIMUS [Suspect]
     Active Substance: TACROLIMUS
     Indication: Atrophoderma of Pasini and Pierini
     Route: 065

REACTIONS (1)
  - Therapy non-responder [Unknown]
